FAERS Safety Report 21096883 (Version 5)
Quarter: 2022Q3

REPORT INFORMATION
  Report Type: Spontaneous
  Country: JP (occurrence: JP)
  Receive Date: 20220718
  Receipt Date: 20220915
  Transmission Date: 20221027
  Serious: Yes (Life-Threatening, Hospitalization, Other)
  Sender: FDA-Public Use
  Company Number: JP-TAIHO-AB220611_P_1

PATIENT
  Age: 80 Year
  Sex: Female
  Weight: 40.8 kg

DRUGS (3)
  1. ABRAXANE [Suspect]
     Active Substance: PACLITAXEL
     Indication: Gastric cancer recurrent
     Dosage: PACLITAXEL INJECTION (SUSPENSION WITH CONTAINED ALBUMIN)
     Route: 041
     Dates: start: 20190307, end: 20190307
  2. CYRAMZA [Suspect]
     Active Substance: RAMUCIRUMAB
     Indication: Gastric cancer recurrent
     Route: 065
     Dates: start: 20190307, end: 20190307
  3. NICORANDIL [Concomitant]
     Active Substance: NICORANDIL
     Indication: Acute myocardial infarction
     Route: 041
     Dates: start: 20190317, end: 20190318

REACTIONS (1)
  - Gastrointestinal perforation [Recovered/Resolved with Sequelae]

NARRATIVE: CASE EVENT DATE: 20190313
